FAERS Safety Report 7548580-1 (Version None)
Quarter: 2011Q2

REPORT INFORMATION
  Report Type: 
  Country: None (occurrence: None)
  Receive Date: 20110608
  Receipt Date: 20110418
  Transmission Date: 20111010
  Serious: No
  Sender: FDA-Public Use
  Company Number: USA/USA/11/0018054

PATIENT
  Age: 67 Year
  Sex: Female

DRUGS (4)
  1. TACROLIMUS [Suspect]
     Indication: PROPHYLAXIS AGAINST TRANSPLANT REJECTION
     Dosage: 2 MG, 2 IN 1 D, 3 MG 1 MG IN AM AND 2 MG IN PM
     Dates: end: 20110401
  2. PREDNISONE [Concomitant]
  3. BACTRIM [Concomitant]
  4. MYFORTIC [Suspect]
     Indication: PRODUCT USED FOR UNKNOWN INDICATION

REACTIONS (5)
  - NERVOUSNESS [None]
  - DIZZINESS [None]
  - TREMOR [None]
  - NEUROLOGICAL SYMPTOM [None]
  - VISUAL IMPAIRMENT [None]
